FAERS Safety Report 9067793 (Version 1)
Quarter: 2013Q1

REPORT INFORMATION
  Report Type: Report from Study
  Country: AT (occurrence: AT)
  Receive Date: 20130128
  Receipt Date: 20130128
  Transmission Date: 20140127
  Serious: Yes (Other)
  Sender: FDA-Public Use
  Company Number: AT-ROCHE-603076

PATIENT
  Age: 85 Year
  Sex: Female

DRUGS (1)
  1. BEVACIZUMAB [Suspect]
     Indication: MACULAR DEGENERATION
     Dosage: 2.5 MG, UNK
     Route: 050

REACTIONS (1)
  - Iridocyclitis [Recovered/Resolved]
